FAERS Safety Report 10164641 (Version 1)
Quarter: 2014Q2

REPORT INFORMATION
  Report Type: Spontaneous
  Country: US (occurrence: US)
  Receive Date: 20140510
  Receipt Date: 20140510
  Transmission Date: 20141212
  Serious: No
  Sender: FDA-Public Use
  Company Number: US-BRISTOL-MYERS SQUIBB COMPANY-20139473

PATIENT
  Age: 67 Year
  Sex: Female
  Weight: 78.46 kg

DRUGS (4)
  1. BYDUREON [Suspect]
     Dates: start: 201305
  2. METFORMIN HCL XR [Suspect]
  3. VITAMIN D [Concomitant]
  4. ASPIRIN [Concomitant]

REACTIONS (2)
  - Injection site nodule [Not Recovered/Not Resolved]
  - Blood glucose increased [Recovered/Resolved]
